FAERS Safety Report 9233601 (Version 1)
Quarter: 2013Q2

REPORT INFORMATION
  Report Type: Spontaneous
  Country: US (occurrence: US)
  Receive Date: 20130416
  Receipt Date: 20130416
  Transmission Date: 20140414
  Serious: No
  Sender: FDA-Public Use
  Company Number: US-BANPHARM-20120496

PATIENT
  Age: 72 Year
  Sex: Female
  Weight: 47.17 kg

DRUGS (2)
  1. ALEVE LIQUID GELS 220MG [Suspect]
     Indication: ARTHRITIS
     Dosage: 2 DF, BID,
     Route: 048
     Dates: start: 20121214, end: 20121218
  2. GABAPENTIN [Concomitant]

REACTIONS (2)
  - Throat irritation [Recovered/Resolved]
  - Wrong technique in drug usage process [Recovered/Resolved]
